FAERS Safety Report 6177440-6 (Version None)
Quarter: 2009Q2

REPORT INFORMATION
  Report Type: 
  Country: None (occurrence: None)
  Receive Date: 20090501
  Receipt Date: 20090501
  Transmission Date: 20091009
  Serious: No
  Sender: FDA-Public Use
  Company Number: None

PATIENT
  Sex: Female

DRUGS (11)
  1. METRONIDAZOLE [Suspect]
     Indication: CLOSTRIDIAL INFECTION
     Dosage: 500MG PO Q8 HRS
     Route: 048
     Dates: start: 20090206, end: 20090210
  2. HEPARIN [Concomitant]
  3. ASPIRIN [Concomitant]
  4. LEVOTHYROXINE SODIUM [Concomitant]
  5. CITALOPRAM HYDROBROMIDE [Concomitant]
  6. MEGESTROL ACETATE [Concomitant]
  7. OXCARBAZEPINE [Concomitant]
  8. LANSOPRAZOLE [Concomitant]
  9. SENNA [Concomitant]
  10. DOCUSATE [Concomitant]
  11. PROCHLORPERAZINE [Concomitant]

REACTIONS (1)
  - CONVULSION [None]
